FAERS Safety Report 4430014-7 (Version None)
Quarter: 2004Q3

REPORT INFORMATION
  Report Type: 
  Country: None (occurrence: None)
  Receive Date: 20040817
  Receipt Date: 20040809
  Transmission Date: 20050211
  Serious: Yes (Hospitalization, Other)
  Sender: FDA-Public Use
  Company Number: HQWYE130710AUG04

PATIENT
  Age: 20 Year
  Sex: Female

DRUGS (2)
  1. EFECTIN ER (VENLAFAXINE HYDROCHLORIDE, CAPSULE, EXTENDED RELEASE) [Suspect]
     Indication: PERSONALITY DISORDER
     Dosage: SEE IMAGE
     Route: 048
     Dates: end: 20040113
  2. EFECTIN ER (VENLAFAXINE HYDROCHLORIDE, CAPSULE, EXTENDED RELEASE) [Suspect]
     Indication: PERSONALITY DISORDER
     Dosage: SEE IMAGE
     Route: 048
     Dates: start: 20031008

REACTIONS (3)
  - ABORTION SPONTANEOUS [None]
  - DRUG EXPOSURE DURING PREGNANCY [None]
  - PLACENTAL DISORDER [None]
